FAERS Safety Report 14431119 (Version 1)
Quarter: 2018Q1

REPORT INFORMATION
  Report Type: Spontaneous
  Country: US (occurrence: US)
  Receive Date: 20180124
  Receipt Date: 20180124
  Transmission Date: 20180509
  Serious: Yes (Other)
  Sender: FDA-Public Use
  Company Number: US-ASTRAZENECA-2018SE08307

PATIENT
  Age: 48 Year
  Sex: Female

DRUGS (1)
  1. FASENRA [Suspect]
     Active Substance: BENRALIZUMAB
     Indication: PROPHYLAXIS
     Dosage: 30MG
     Route: 058
     Dates: start: 20171128

REACTIONS (6)
  - Off label use [Unknown]
  - Sinusitis [Unknown]
  - Product use in unapproved indication [Unknown]
  - Pyrexia [Recovered/Resolved]
  - Fatigue [Unknown]
  - Viral infection [Unknown]
